FAERS Safety Report 25233727 (Version 1)
Quarter: 2025Q2

REPORT INFORMATION
  Report Type: Spontaneous
  Country: US (occurrence: US)
  Receive Date: 20250424
  Receipt Date: 20250424
  Transmission Date: 20250717
  Serious: Yes (Other)
  Sender: Latina Pharma
  Company Number: US-LATINA PHARMA S.P.A-US-2025COR000001

PATIENT

DRUGS (5)
  1. GLEOSTINE [Suspect]
     Active Substance: LOMUSTINE
     Indication: Product used for unknown indication
  2. GLEOSTINE [Suspect]
     Active Substance: LOMUSTINE
  3. GLEOSTINE [Suspect]
     Active Substance: LOMUSTINE
  4. UNSPECIFIED INGREDIENT [Concomitant]
     Active Substance: UNSPECIFIED INGREDIENT
     Indication: Product used for unknown indication
  5. AVASTIN [Concomitant]
     Active Substance: BEVACIZUMAB
     Indication: Product used for unknown indication

REACTIONS (1)
  - Hemianopia [Unknown]

NARRATIVE: CASE EVENT DATE: 20250410
